FAERS Safety Report 15394848 (Version 1)
Quarter: 2018Q3

REPORT INFORMATION
  Report Type: Spontaneous
  Country: JP (occurrence: JP)
  Receive Date: 20180918
  Receipt Date: 20180918
  Transmission Date: 20181010
  Serious: Yes (Hospitalization, Other)
  Sender: FDA-Public Use
  Company Number: JP-CONCORDIA PHARMACEUTICALS INC.-GSH201807-002427

PATIENT
  Age: 32 Year
  Sex: Female
  Weight: 57 kg

DRUGS (4)
  1. PREDNISOLONE. [Concomitant]
     Active Substance: PREDNISOLONE
     Indication: SYSTEMIC LUPUS ERYTHEMATOSUS
     Dates: start: 20180507, end: 20180623
  2. PREDNISOLONE. [Concomitant]
     Active Substance: PREDNISOLONE
  3. PREDNISOLONE. [Concomitant]
     Active Substance: PREDNISOLONE
     Route: 048
  4. PLAQUENIL [Suspect]
     Active Substance: HYDROXYCHLOROQUINE SULFATE
     Indication: SYSTEMIC LUPUS ERYTHEMATOSUS
     Dosage: 1 TABLET/DAY AND 2 TABLETS/DAY, ALTERNATELY
     Route: 048
     Dates: start: 20180605, end: 20180622

REACTIONS (5)
  - Erythema [Recovered/Resolved]
  - Conjunctival hyperaemia [Recovered/Resolved]
  - Pruritus [Recovered/Resolved]
  - Stevens-Johnson syndrome [Recovered/Resolved]
  - Pyrexia [Recovered/Resolved]

NARRATIVE: CASE EVENT DATE: 20180620
